FAERS Safety Report 19812119 (Version 1)
Quarter: 2021Q3

REPORT INFORMATION
  Report Type: Spontaneous
  Country: IT (occurrence: IT)
  Receive Date: 20210909
  Receipt Date: 20210909
  Transmission Date: 20211014
  Serious: Yes (Death, Other)
  Sender: FDA-Public Use
  Company Number: IT-MYLANLABS-2021M1055941

PATIENT

DRUGS (29)
  1. RITUXIMAB. [Suspect]
     Active Substance: RITUXIMAB
     Dosage: 2ND LINE TREATMENT (BR)
  2. RITUXIMAB. [Suspect]
     Active Substance: RITUXIMAB
     Dosage: UNK
  3. DEXAMETHASONE. [Suspect]
     Active Substance: DEXAMETHASONE
     Dosage: 2ND LINE TREATMENT (R?DHAOX)
  4. SOFOSBUVIR [Concomitant]
     Active Substance: SOFOSBUVIR
     Indication: HEPATITIS C
     Dosage: SEQUENTIAL TO SECOND?LINE I?CT
  5. MABTHERA [Suspect]
     Active Substance: RITUXIMAB
     Dosage: SECOND LINE I?CT (R?BENDAMUSTINE)
  6. MINE [MESNA] [Suspect]
     Active Substance: MESNA
  7. RITUXIMAB. [Suspect]
     Active Substance: RITUXIMAB
     Indication: DIFFUSE LARGE B-CELL LYMPHOMA STAGE III
     Dosage: 3RD LINE TREATMENT (R?CVP)
  8. MABTHERA [Suspect]
     Active Substance: RITUXIMAB
     Dosage: FIRST LINE I?CT (R?DHAP X 2)UNK
  9. OXALIPLATIN. [Suspect]
     Active Substance: OXALIPLATIN
     Indication: DIFFUSE LARGE B-CELL LYMPHOMA STAGE IV
     Dosage: 2ND LINE TREATMENT (R?DHAOX);3RD LINE TREATMENT (R?GEMOX)
  10. DEXAMETHASONE. [Suspect]
     Active Substance: DEXAMETHASONE
     Indication: DIFFUSE LARGE B-CELL LYMPHOMA STAGE IV
     Dosage: FIRST LINE I?CT (R?DHAP X 2)
     Route: 065
  11. CISPLATIN. [Suspect]
     Active Substance: CISPLATIN
     Indication: DIFFUSE LARGE B-CELL LYMPHOMA STAGE IV
     Dosage: FIRST LINE I?CT (R?DHAP X 2)
     Route: 065
  12. GEMCITABINE W/OXALIPLATIN [Suspect]
     Active Substance: GEMCITABINE HYDROCHLORIDE\OXALIPLATIN
     Indication: DIFFUSE LARGE B-CELL LYMPHOMA STAGE IV
     Dosage: 3RD LINE TREATMENT (R?GEMOX)
  13. BENDAMUSTINE HYDROCHLORIDE. [Suspect]
     Active Substance: BENDAMUSTINE HYDROCHLORIDE
     Dosage: 3RD LINE I?CT
  14. RITUXIMAB. [Suspect]
     Active Substance: RITUXIMAB
     Indication: DIFFUSE LARGE B-CELL LYMPHOMA STAGE IV
     Dosage: FIRST LINE I?CT (R?DHAP X 2)
     Route: 065
  15. CYTARABINE. [Suspect]
     Active Substance: CYTARABINE
     Indication: DIFFUSE LARGE B-CELL LYMPHOMA STAGE IV
     Dosage: FIRST LINE I?CT (R?DHAP X 2)
     Route: 065
  16. CYCLOPHOSPHAMIDE W/PREDNISONE/VINCRISTINE SUL [Suspect]
     Active Substance: CYCLOPHOSPHAMIDE\PREDNISONE\VINCRISTINE
     Indication: DIFFUSE LARGE B-CELL LYMPHOMA STAGE III
     Dosage: 3RD LINE TREATMENT (R?CVP)
  17. LEDIPASVIR [Suspect]
     Active Substance: LEDIPASVIR
     Indication: HEPATITIS C
     Dosage: UNK
  18. DACLATASVIR;SOFOSBUVIR [Concomitant]
     Active Substance: DACLATASVIR\SOFOSBUVIR
     Indication: HEPATITIS C
     Dosage: SEQ. (2ND LINE)
  19. MINE [IFOSFAMIDE] [Suspect]
     Active Substance: IFOSFAMIDE
  20. MINE [MITOXANTRONE] [Suspect]
     Active Substance: MITOXANTRONE HYDROCHLORIDE
  21. MABTHERA [Suspect]
     Active Substance: RITUXIMAB
     Dosage: 3RD LINE TREATMENT (R?GEMOX)UNK
  22. BENDAMUSTINE HYDROCHLORIDE. [Suspect]
     Active Substance: BENDAMUSTINE HYDROCHLORIDE
     Indication: DIFFUSE LARGE B-CELL LYMPHOMA STAGE III
     Dosage: SECOND LINE I?CT (R?BENDAMUSTINE)
     Route: 065
  23. CYTARABINE. [Suspect]
     Active Substance: CYTARABINE
     Dosage: 2ND LINE TREATMENT (R?DHAOX)
  24. MABTHERA [Suspect]
     Active Substance: RITUXIMAB
     Indication: DIFFUSE LARGE B-CELL LYMPHOMA STAGE IV
     Dosage: 2ND LINE TREATMENT (R?DHAOX)UNK
  25. MABTHERA [Suspect]
     Active Substance: RITUXIMAB
     Indication: DIFFUSE LARGE B-CELL LYMPHOMA STAGE III
     Dosage: 1ST LINE TREATMENT (R?CHOP)
  26. GEMCITABINE. [Suspect]
     Active Substance: GEMCITABINE
     Indication: DIFFUSE LARGE B-CELL LYMPHOMA STAGE IV
     Dosage: 3RD LINE TREATMENT (R?GEMOX)
  27. VELPATASVIR [Concomitant]
     Active Substance: VELPATASVIR
     Indication: HEPATITIS C
     Dosage: SEQUENTIAL TO SECOND?LINE I?CT
  28. CYCLOPHOSPHAMIDE W/PREDNISONE/VINCRISTINE SUL [Suspect]
     Active Substance: CYCLOPHOSPHAMIDE\PREDNISONE\VINCRISTINE
     Dosage: 1ST LINE TREATMENT (R?CHOP)
  29. MINE [ETOPOSIDE] [Suspect]
     Active Substance: ETOPOSIDE
     Indication: DIFFUSE LARGE B-CELL LYMPHOMA STAGE III
     Dosage: 2ND LINE I?CT

REACTIONS (4)
  - Pneumonia [Fatal]
  - Diffuse large B-cell lymphoma recurrent [Fatal]
  - Therapy partial responder [Unknown]
  - Disease progression [Fatal]
